FAERS Safety Report 10614517 (Version 2)
Quarter: 2015Q1

REPORT INFORMATION
  Report Type: Spontaneous
  Country: US (occurrence: US)
  Receive Date: 20141129
  Receipt Date: 20150112
  Transmission Date: 20150720
  Serious: Yes (Other)
  Sender: FDA-Public Use
  Company Number: US-AMGEN-USASP2014091310

PATIENT
  Age: 67 Year
  Sex: Female

DRUGS (6)
  1. CORTISONE [Concomitant]
     Active Substance: CORTISONE\HYDROCORTISONE
  2. MOBIC [Concomitant]
     Active Substance: MELOXICAM
  3. PERCOCET                           /00446701/ [Concomitant]
     Active Substance: ACETAMINOPHEN\OXYCODONE HYDROCHLORIDE\OXYCODONE TEREPHTHALATE
  4. BENTYL [Concomitant]
     Active Substance: DICYCLOMINE HYDROCHLORIDE
  5. PROLIA [Suspect]
     Active Substance: DENOSUMAB
     Indication: OSTEOPOROSIS
     Dosage: UNK
     Route: 065
  6. LEVSIN [Concomitant]
     Active Substance: HYOSCYAMINE SULFATE
     Dosage: AS NEEDED

REACTIONS (5)
  - Hysterectomy [Unknown]
  - Arthropathy [Unknown]
  - Arthralgia [Recovered/Resolved]
  - Bone loss [Unknown]
  - Rotator cuff syndrome [Unknown]
